FAERS Safety Report 5171477-1 (Version None)
Quarter: 2006Q4

REPORT INFORMATION
  Report Type: 
  Country: None (occurrence: None)
  Receive Date: 20061213
  Receipt Date: 20060206
  Transmission Date: 20070319
  Serious: Yes (Other)
  Sender: FDA-Public Use
  Company Number: US-AMGEN-US167654

PATIENT
  Sex: Female
  Weight: 57.7 kg

DRUGS (7)
  1. ENBREL [Suspect]
     Indication: RHEUMATOID ARTHRITIS
     Dates: start: 20050101, end: 20051201
  2. ACTONEL [Concomitant]
  3. ARTHROTEC [Concomitant]
  4. OGEN [Concomitant]
  5. AZULFIDINE [Concomitant]
  6. ATIVAN [Concomitant]
  7. AVALIDE [Concomitant]

REACTIONS (1)
  - B-CELL SMALL LYMPHOCYTIC LYMPHOMA [None]
